FAERS Safety Report 8167465-3 (Version None)
Quarter: 2012Q1

REPORT INFORMATION
  Report Type: 
  Country: None (occurrence: None)
  Receive Date: 20120227
  Receipt Date: 20120221
  Transmission Date: 20120608
  Serious: Yes (Hospitalization)
  Sender: FDA-Public Use
  Company Number: US-PFIZER INC-2012048078

PATIENT
  Sex: Female

DRUGS (1)
  1. QUINAPRIL HCL [Suspect]
     Dosage: UNK

REACTIONS (5)
  - CLOSTRIDIAL INFECTION [None]
  - ALOPECIA [None]
  - NERVOUSNESS [None]
  - URTICARIA [None]
  - HYPERTENSION [None]
